FAERS Safety Report 12678515 (Version 4)
Quarter: 2017Q1

REPORT INFORMATION
  Report Type: Report from Study
  Country: None (occurrence: US)
  Receive Date: 20160823
  Receipt Date: 20170111
  Transmission Date: 20170428
  Serious: Yes (Other)
  Sender: FDA-Public Use
  Company Number: US-ALLERGAN-1666100US

PATIENT
  Age: 74 Year
  Sex: Male
  Weight: 82.99 kg

DRUGS (2)
  1. BRIMONIDINE [Suspect]
     Active Substance: BRIMONIDINE TARTRATE
     Indication: DRY AGE-RELATED MACULAR DEGENERATION
     Dosage: UNK
     Dates: start: 20160510, end: 20160510
  2. BRIMONIDINE [Suspect]
     Active Substance: BRIMONIDINE TARTRATE
     Dosage: UNK
     Dates: start: 20160212, end: 20160212

REACTIONS (1)
  - Retinal tear [Recovered/Resolved]

NARRATIVE: CASE EVENT DATE: 20160816
